FAERS Safety Report 9852321 (Version 1)
Quarter: 2014Q1

REPORT INFORMATION
  Report Type: Spontaneous
  Country: US (occurrence: US)
  Receive Date: 20140129
  Receipt Date: 20140129
  Transmission Date: 20141002
  Serious: No
  Sender: FDA-Public Use
  Company Number: US-009507513-1401USA004251

PATIENT
  Age: 12 Year
  Sex: Male
  Weight: 40.82 kg

DRUGS (2)
  1. CLARITIN-D-24 [Suspect]
     Indication: HYPERSENSITIVITY
     Dosage: 10 MG, ONCE
     Route: 048
     Dates: start: 20140107
  2. CLARITIN-D-24 [Suspect]
     Dosage: 10 MG, ONCE
     Route: 048
     Dates: start: 20140107

REACTIONS (5)
  - Feeling hot [Unknown]
  - Hyperhidrosis [Unknown]
  - Decreased appetite [Unknown]
  - Accidental overdose [Unknown]
  - Inappropriate schedule of drug administration [Unknown]
